FAERS Safety Report 5148090-5 (Version None)
Quarter: 2006Q4

REPORT INFORMATION
  Report Type: 
  Country: None (occurrence: None)
  Receive Date: 20061110
  Receipt Date: 20061102
  Transmission Date: 20070319
  Serious: Yes (Hospitalization)
  Sender: FDA-Public Use
  Company Number: MW-GILEAD-2006-0010595

PATIENT
  Age: 25 Year
  Sex: Female
  Weight: 55 kg

DRUGS (3)
  1. EMTRICITABINE [Suspect]
     Indication: HIV INFECTION
     Route: 048
     Dates: start: 20061016
  2. ATAZANAVIR [Suspect]
     Indication: HIV INFECTION
     Route: 048
     Dates: start: 20061016
  3. DDI-EC [Suspect]
     Indication: HIV INFECTION
     Route: 048
     Dates: start: 20061016

REACTIONS (3)
  - BLOOD PRESSURE DECREASED [None]
  - FOOD POISONING [None]
  - GASTROENTERITIS [None]
